FAERS Safety Report 5605413-8 (Version None)
Quarter: 2008Q1

REPORT INFORMATION
  Report Type: 
  Country: None (occurrence: None)
  Receive Date: 20080129
  Receipt Date: 20080118
  Transmission Date: 20080703
  Serious: Yes (Other)
  Sender: FDA-Public Use
  Company Number: US-BAYER-US-2007-038026

PATIENT
  Age: 22 Year
  Sex: Female
  Weight: 101 kg

DRUGS (3)
  1. MIRENA [Suspect]
     Indication: CONTRACEPTION
     Route: 015
     Dates: start: 20070427
  2. FEMCON [Concomitant]
     Dates: start: 20070915
  3. ADVAIR DISKUS 100/50 [Concomitant]

REACTIONS (5)
  - COITAL BLEEDING [None]
  - DYSPAREUNIA [None]
  - PROCEDURAL PAIN [None]
  - UTERINE RUPTURE [None]
  - VAGINAL INFECTION [None]
